FAERS Safety Report 7714070-6 (Version None)
Quarter: 2011Q3

REPORT INFORMATION
  Report Type: 
  Country: None (occurrence: None)
  Receive Date: 20110826
  Receipt Date: 20090731
  Transmission Date: 20111222
  Serious: Yes (Other)
  Sender: FDA-Public Use
  Company Number: PHHY2009TW60869

PATIENT

DRUGS (1)
  1. GLEEVEC [Suspect]
     Indication: CHRONIC MYELOID LEUKAEMIA
     Dosage: 400 MG, UNK

REACTIONS (9)
  - METASTASES TO CENTRAL NERVOUS SYSTEM [None]
  - NECK PAIN [None]
  - EYE PAIN [None]
  - CENTRAL NERVOUS SYSTEM INFECTION [None]
  - MUSCULOSKELETAL PAIN [None]
  - EYE OEDEMA [None]
  - DISCOMFORT [None]
  - ARTHRALGIA [None]
  - SKIN EXFOLIATION [None]
